FAERS Safety Report 17537828 (Version 3)
Quarter: 2020Q2

REPORT INFORMATION
  Report Type: Report from Study
  Country: None (occurrence: NL)
  Receive Date: 20200313
  Receipt Date: 20200401
  Transmission Date: 20200713
  Serious: Yes (Hospitalization, Other)
  Sender: FDA-Public Use
  Company Number: NL-ABBVIE-20K-114-3316107-00

PATIENT
  Age: 78 Year
  Sex: Female

DRUGS (2)
  1. MADOPAR HBS [Concomitant]
     Active Substance: BENSERAZIDE HYDROCHLORIDE\LEVODOPA
     Indication: PRODUCT USED FOR UNKNOWN INDICATION
     Dates: start: 20190904
  2. DUODOPA [Suspect]
     Active Substance: CARBIDOPA\LEVODOPA
     Indication: PARKINSON^S DISEASE
     Dosage: MD: 3 CD: 2.9 ED: 2.5
     Route: 050
     Dates: start: 20100211

REACTIONS (5)
  - Coronavirus test positive [Recovered/Resolved]
  - Respiratory disorder [Recovered/Resolved]
  - Apnoea [Recovered/Resolved]
  - Device kink [Unknown]
  - Extra dose administered [Recovered/Resolved]

NARRATIVE: CASE EVENT DATE: 2020
